FAERS Safety Report 25735014 (Version 3)
Quarter: 2025Q3

REPORT INFORMATION
  Report Type: Spontaneous
  Country: US (occurrence: US)
  Receive Date: 20250828
  Receipt Date: 20250903
  Transmission Date: 20251020
  Serious: No
  Sender: LUPIN
  Company Number: US-LUPIN PHARMACEUTICALS INC.-2025-07502

PATIENT
  Age: 76 Year
  Weight: 97.506 kg

DRUGS (2)
  1. ALBUTEROL SULFATE [Suspect]
     Active Substance: ALBUTEROL SULFATE
     Indication: Asthma
  2. XOPENEX HFA [Concomitant]
     Active Substance: LEVALBUTEROL TARTRATE
     Indication: Asthma

REACTIONS (4)
  - Adverse event [Unknown]
  - Illness [Unknown]
  - Dyspnoea [Unknown]
  - Drug hypersensitivity [Unknown]
